FAERS Safety Report 12395708 (Version 1)
Quarter: 2016Q2

REPORT INFORMATION
  Report Type: Spontaneous
  Country: US (occurrence: US)
  Receive Date: 20160523
  Receipt Date: 20160523
  Transmission Date: 20160815
  Serious: No
  Sender: FDA-Public Use
  Company Number: US-SHIRE-US201606243

PATIENT
  Sex: Female

DRUGS (1)
  1. PENTASA [Suspect]
     Active Substance: MESALAMINE
     Indication: CROHN^S DISEASE
     Dosage: 1000 MG, 4X/DAY:QID
     Route: 048
     Dates: start: 201605

REACTIONS (2)
  - Medication residue present [Unknown]
  - Product use issue [Unknown]

NARRATIVE: CASE EVENT DATE: 201605
